FAERS Safety Report 16983989 (Version 1)
Quarter: 2019Q4

REPORT INFORMATION
  Report Type: Spontaneous
  Country: US (occurrence: US)
  Receive Date: 20191101
  Receipt Date: 20191101
  Transmission Date: 20200122
  Serious: Yes (Other)
  Sender: FDA-Public Use
  Company Number: US-REGULIS-2076337

PATIENT
  Age: 26 Year
  Sex: Female
  Weight: 109 kg

DRUGS (11)
  1. CEFEPIME [Concomitant]
     Active Substance: CEFEPIME HYDROCHLORIDE
     Route: 042
     Dates: start: 20190704
  2. METRONIDAZOLE. [Concomitant]
     Active Substance: METRONIDAZOLE
     Route: 042
     Dates: start: 20190704
  3. INSULIN [Concomitant]
     Active Substance: INSULIN NOS
     Route: 042
     Dates: start: 20190704
  4. FENTANYL. [Concomitant]
     Active Substance: FENTANYL
     Route: 042
     Dates: start: 20190704
  5. VASOPRESSIN. [Concomitant]
     Active Substance: VASOPRESSIN
     Route: 042
     Dates: start: 20190704
  6. EPINEPHRINE. [Concomitant]
     Active Substance: EPINEPHRINE
     Route: 042
     Dates: start: 20190704
  7. NEOSYNEPHRINE (PHENYLEPHRINE HYDROCHLORIDE) [Concomitant]
     Route: 042
     Dates: start: 20190704
  8. PROVAYBLUE [Suspect]
     Active Substance: METHYLENE BLUE
     Indication: SHOCK
     Route: 065
     Dates: start: 20190705, end: 20190706
  9. HYDROCORTISONE. [Concomitant]
     Active Substance: HYDROCORTISONE
     Route: 042
     Dates: start: 20190704
  10. VANCOMYCIN [Concomitant]
     Active Substance: VANCOMYCIN
     Route: 042
     Dates: start: 20190704
  11. NOREPINEPHRINE. [Concomitant]
     Active Substance: NOREPINEPHRINE
     Route: 042
     Dates: start: 20190704

REACTIONS (2)
  - Pancytopenia [Recovered/Resolved]
  - Off label use [Unknown]

NARRATIVE: CASE EVENT DATE: 20190705
